FAERS Safety Report 7539770-2 (Version None)
Quarter: 2011Q2

REPORT INFORMATION
  Report Type: 
  Country: None (occurrence: None)
  Receive Date: 20110610
  Receipt Date: 20110530
  Transmission Date: 20111010
  Serious: Yes (Other)
  Sender: FDA-Public Use
  Company Number: PHHY2011JP48353

PATIENT
  Age: 1 Year
  Sex: Male

DRUGS (3)
  1. KINDAVATE [Concomitant]
     Dosage: 0.5 G, UNK
     Dates: start: 20100907
  2. LOCOID [Concomitant]
     Dosage: 0.5 G, UNK
     Dates: start: 20101210
  3. ZADITEN [Suspect]
     Indication: DERMATITIS ATOPIC
     Dosage: 0.8 G, QD
     Route: 048
     Dates: start: 20100907

REACTIONS (1)
  - EPILEPSY [None]
